FAERS Safety Report 7224862-8 (Version None)
Quarter: 2011Q1

REPORT INFORMATION
  Report Type: 
  Country: None (occurrence: None)
  Receive Date: 20110113
  Receipt Date: 20110110
  Transmission Date: 20110831
  Serious: Yes (Hospitalization, Other)
  Sender: FDA-Public Use
  Company Number: BR-ROCHE-748295

PATIENT
  Age: 67 Year
  Sex: Male

DRUGS (2)
  1. PEGINTERFERON ALFA-2A [Suspect]
     Indication: HEPATITIS C
     Dosage: AFTER 9 WEEKS DISCONTINUED.
     Route: 065
  2. RIBAVARIN [Suspect]
     Indication: HEPATITIS C
     Dosage: AFTER 9 WEEKS DISCONTINUED.
     Route: 065

REACTIONS (10)
  - HAEMATEMESIS [None]
  - DECREASED APPETITE [None]
  - HAEMATOCRIT DECREASED [None]
  - GENERAL PHYSICAL HEALTH DETERIORATION [None]
  - PANCYTOPENIA [None]
  - ASTHENIA [None]
  - PLATELET COUNT DECREASED [None]
  - HAEMOGLOBIN DECREASED [None]
  - WHITE BLOOD CELL COUNT DECREASED [None]
  - PORTAL HYPERTENSION [None]
